FAERS Safety Report 7642976-5 (Version None)
Quarter: 2011Q3

REPORT INFORMATION
  Report Type: 
  Country: None (occurrence: None)
  Receive Date: 20110728
  Receipt Date: 20110720
  Transmission Date: 20111222
  Serious: Yes (Life-Threatening)
  Sender: FDA-Public Use
  Company Number: GB-CELGENEUS-167-20785-11010963

PATIENT
  Sex: Male

DRUGS (5)
  1. BENDAMUSTINE [Concomitant]
     Route: 065
     Dates: start: 20110107, end: 20110107
  2. ACYCLOVIR [Concomitant]
     Indication: PROPHYLAXIS
     Dosage: 600 MILLIGRAM
     Route: 065
  3. THALIDOMIDE [Suspect]
     Route: 048
     Dates: start: 20100201
  4. VORICONAZOLE [Concomitant]
     Indication: FUNGAL INFECTION
     Dosage: 400 MILLIGRAM
     Route: 065
  5. BENDAMUSTINE [Concomitant]
     Route: 065
     Dates: start: 20100201

REACTIONS (4)
  - IMMUNOGLOBULINS INCREASED [None]
  - HYPERCALCAEMIA [None]
  - PSEUDOMONAL SEPSIS [None]
  - RENAL IMPAIRMENT [None]
